FAERS Safety Report 8402634-6 (Version None)
Quarter: 2012Q2

REPORT INFORMATION
  Report Type: 
  Country: None (occurrence: None)
  Receive Date: 20120601
  Receipt Date: 20120528
  Transmission Date: 20120825
  Serious: Yes (Other)
  Sender: FDA-Public Use
  Company Number: PHHY2012JP044169

PATIENT
  Age: 64 Year
  Sex: Female

DRUGS (2)
  1. METOPROLOL TARTRATE [Suspect]
     Route: 048
     Dates: start: 20100915
  2. MEXILETINE HYDROCHLORIDE [Suspect]
     Route: 048
     Dates: start: 20100903

REACTIONS (7)
  - HEPATIC FUNCTION ABNORMAL [None]
  - LYMPHOCYTE MORPHOLOGY ABNORMAL [None]
  - PRURITUS [None]
  - WHITE BLOOD CELL COUNT INCREASED [None]
  - ERYTHEMA MULTIFORME [None]
  - DRUG ERUPTION [None]
  - ERYTHEMA [None]
